FAERS Safety Report 10355369 (Version 1)
Quarter: 2014Q3

REPORT INFORMATION
  Report Type: Spontaneous
  Country: BR (occurrence: BR)
  Receive Date: 20140731
  Receipt Date: 20140731
  Transmission Date: 20150326
  Serious: Yes (Hospitalization, Other)
  Sender: FDA-Public Use
  Company Number: BR-PFIZER INC-2014209589

PATIENT
  Age: 65 Year
  Sex: Male
  Weight: 112 kg

DRUGS (6)
  1. CITALOR [Suspect]
     Active Substance: ATORVASTATIN
     Indication: BLOOD CHOLESTEROL ABNORMAL
     Dosage: ONE TABLET (20 MG), 1X/DAY
     Route: 048
     Dates: start: 2009
  2. DIGOXIN. [Concomitant]
     Active Substance: DIGOXIN
     Dosage: ^1.5^ (UNSPECIFIED UNIT) DAILY
     Dates: start: 2009
  3. GLIFAGE [Concomitant]
     Active Substance: METFORMIN HYDROCHLORIDE
     Indication: DIABETES MELLITUS
     Dosage: ONE UNIT (UNSPECIFIED DOSE) DAILY
     Dates: start: 2009
  4. ATACAND [Concomitant]
     Active Substance: CANDESARTAN CILEXETIL
     Indication: BLOOD PRESSURE INCREASED
     Dosage: 1 UNIT (UNSPECIFIED DOSE) DAILY
     Dates: start: 2009
  5. CARDIZEM [Concomitant]
     Active Substance: DILTIAZEM HYDROCHLORIDE
     Dosage: ONE UNIT (UNSPECIFIED DOSE) DAILY
     Dates: start: 2009
  6. MAREVAN [Concomitant]
     Active Substance: WARFARIN SODIUM
     Indication: BLOOD DISORDER
     Dosage: 1 UNIT (UNSPECIFIE DOSE), DAILY
     Dates: start: 2009

REACTIONS (3)
  - Feeling abnormal [Unknown]
  - Pneumonia [Unknown]
  - Angina pectoris [Unknown]

NARRATIVE: CASE EVENT DATE: 2009
